FAERS Safety Report 21611386 (Version 2)
Quarter: 2022Q4

REPORT INFORMATION
  Report Type: Spontaneous
  Country: US (occurrence: US)
  Receive Date: 20221117
  Receipt Date: 20221214
  Transmission Date: 20230112
  Serious: Yes (Life-Threatening, Hospitalization)
  Sender: FDA-Public Use
  Company Number: US-TEVA-2022-US-2826224

PATIENT
  Age: 63 Year
  Sex: Female

DRUGS (2)
  1. PREDNISONE [Suspect]
     Active Substance: PREDNISONE
     Indication: Rheumatoid arthritis
     Route: 065
  2. SARILUMAB [Suspect]
     Active Substance: SARILUMAB
     Indication: Rheumatoid arthritis
     Route: 065

REACTIONS (5)
  - Purulent pericarditis [Unknown]
  - Pericardial effusion [Unknown]
  - Cardiac tamponade [Unknown]
  - Hypoxia [Unknown]
  - Haemodynamic instability [Unknown]
